FAERS Safety Report 4597849-1 (Version None)
Quarter: 2005Q1

REPORT INFORMATION
  Report Type: 
  Country: None (occurrence: None)
  Receive Date: 20050301
  Receipt Date: 20050215
  Transmission Date: 20050727
  Serious: Yes (Life-Threatening)
  Sender: FDA-Public Use
  Company Number: MK200502-0187-1

PATIENT
  Age: 82 Year
  Sex: Male

DRUGS (1)
  1. OPTIRAY 320 [Suspect]
     Indication: COMPUTERISED TOMOGRAM
     Dosage: 60 ML, ONCE
     Dates: start: 20050215, end: 20050215

REACTIONS (4)
  - BRAIN DEATH [None]
  - CARDIO-RESPIRATORY ARREST [None]
  - DYSPNOEA [None]
  - PROCEDURAL COMPLICATION [None]
